FAERS Safety Report 6950832 (Version 10)
Quarter: 2014Q3

REPORT INFORMATION
  Report Type: Report from Study
  Country: GB (occurrence: GB)
  Receive Date: 20090325
  Receipt Date: 20140929
  Transmission Date: 20150326
  Serious: Yes (Other)
  Sender: FDA-Public Use
  Company Number: GB-BAYER-200910854BNE

PATIENT
  Age: 57 Year
  Sex: Female
  Weight: 62.8 kg

DRUGS (3)
  1. RAMIPRIL. [Concomitant]
     Active Substance: RAMIPRIL
     Indication: HYPERTENSION
     Dosage: 5 MG (DAILY DOSE), QD, ORAL
     Route: 048
     Dates: start: 20070223
  2. SORAFENIB (RAF KINASE INHIBITOR) [Suspect]
     Active Substance: SORAFENIB
     Indication: METASTATIC MALIGNANT MELANOMA
     Dosage: 400 MG (DAILY DOSE), , ORAL
     Route: 048
     Dates: start: 20060526
  3. BENDROFLUMETHIAZIDE [Concomitant]
     Active Substance: BENDROFLUMETHIAZIDE
     Indication: HYPERTENSION
     Dosage: 2.5 MG (DAILY DOSE), QD, ORAL
     Route: 048
     Dates: start: 20060811

REACTIONS (3)
  - Visual impairment [Recovering/Resolving]
  - Hypertension [Recovering/Resolving]
  - Retinal vein occlusion [Recovering/Resolving]

NARRATIVE: CASE EVENT DATE: 20070223
